FAERS Safety Report 9121498 (Version 2)
Quarter: 2013Q2

REPORT INFORMATION
  Report Type: Spontaneous
  Country: US (occurrence: US)
  Receive Date: 20130108
  Receipt Date: 20130520
  Transmission Date: 20140414
  Serious: Yes (Other)
  Sender: FDA-Public Use
  Company Number: US-RB-048373-13

PATIENT
  Age: 31 Year
  Sex: Female

DRUGS (6)
  1. SUBOXONE FILM [Suspect]
     Dosage: SUBOXONE FILM
     Route: 060
     Dates: start: 2010, end: 201211
  2. SUBOXONE FILM [Suspect]
     Indication: DRUG DEPENDENCE
     Dosage: SUBOXONE FILM
     Route: 060
     Dates: start: 20121127, end: 20121224
  3. SUBOXONE FILM [Suspect]
     Dosage: SUBOXONE FILM
     Route: 060
     Dates: start: 20121227, end: 20121227
  4. SUBOXONE FILM [Suspect]
     Dosage: SUBOXONE FILM
     Route: 060
  5. SUBOXONE FILM [Suspect]
     Dosage: SUBOXONE FILM; WOULD RUN OUT OF HER PRESRIPTION EARLY, STOP THE THERAPY AND RESTART IT
     Route: 060
  6. VALIUM [Concomitant]
     Indication: ANXIETY
     Dosage: DOSING DETAILS UNKNOWN; START DATE ^MANY YEARS AGO^
     Route: 048

REACTIONS (4)
  - Convulsion [Not Recovered/Not Resolved]
  - Drug withdrawal syndrome [Not Recovered/Not Resolved]
  - Dizziness [Recovered/Resolved]
  - Intentional overdose [Not Recovered/Not Resolved]
